FAERS Safety Report 6523075-2 (Version None)
Quarter: 2009Q4

REPORT INFORMATION
  Report Type: 
  Country: None (occurrence: None)
  Receive Date: 20091222
  Receipt Date: 20091215
  Transmission Date: 20100525
  Serious: Yes (Hospitalization)
  Sender: FDA-Public Use
  Company Number: 2009029708

PATIENT
  Age: 59 Year
  Sex: Female
  Weight: 90.7194 kg

DRUGS (25)
  1. PROVIGIL [Suspect]
     Indication: SOMNOLENCE
     Dosage: 200 MG, ORAL
     Route: 048
     Dates: start: 20080101, end: 20091214
  2. OXYCONTIN [Concomitant]
  3. OXY-IR (OXYCODONE HYDROCHOORIDE) [Concomitant]
  4. SKELAXIN (CHLORZOXAZONE, PARACETAMOL) TABLET [Concomitant]
  5. SPIRONOLACTONE [Concomitant]
  6. BUMETANIDE (BUMETANIDE) (TABLET) [Concomitant]
  7. MIRAPEX [Concomitant]
  8. PRILOSEC [Concomitant]
  9. ALBUTEROL SULFATE (SALBUTAMOL) [Concomitant]
  10. SYMBICORT [Concomitant]
  11. SAVELLA (MILNACIPRAN) (TABLET) [Concomitant]
  12. SPIRIVA (TIOTROPIM BROMIDE) [Concomitant]
  13. PROAIR (FLUTICASONE PROPIONATE) [Concomitant]
  14. ZYRTEC [Concomitant]
  15. SINGULAIR (MONTELUKAST) (TABLET) [Concomitant]
  16. PREMARIN (ESTR0GENS CONJUGATED) (TABLET) [Concomitant]
  17. PROVERA [Concomitant]
  18. TOVIAZ (FESOTERODINE) (TABLET) [Concomitant]
  19. MUCINEX (GUAIFENESIN) (TABLET) [Concomitant]
  20. VOLTAREN [Concomitant]
  21. HYDROCORTONE [Concomitant]
  22. BACTROBAN [Concomitant]
  23. PATANOL [Concomitant]
  24. SYSTANE (PROPYLENE GLYCOL, MACROGOL) [Concomitant]
  25. FLOVENT [Concomitant]

REACTIONS (6)
  - BLISTER [None]
  - CELLULITIS [None]
  - CONDITION AGGRAVATED [None]
  - FALL [None]
  - RASH [None]
  - SOMNOLENCE [None]
